FAERS Safety Report 21786298 (Version 1)
Quarter: 2022Q4

REPORT INFORMATION
  Report Type: Spontaneous
  Country: IT (occurrence: IT)
  Receive Date: 20221228
  Receipt Date: 20221228
  Transmission Date: 20230113
  Serious: Yes (Hospitalization)
  Sender: FDA-Public Use
  Company Number: IT-NATCOUSA-2022-NATCOUSA-000105

PATIENT
  Age: 51 Year
  Sex: Female

DRUGS (6)
  1. ERLOTINIB [Suspect]
     Active Substance: ERLOTINIB
     Indication: Non-small cell lung cancer
  2. DEXAMETHASONE [Concomitant]
     Active Substance: DEXAMETHASONE
  3. FUROSEMIDE [Concomitant]
     Active Substance: FUROSEMIDE
  4. ACYCLOVIR [Concomitant]
     Active Substance: ACYCLOVIR
  5. LANSOPRAZOLE [Concomitant]
     Active Substance: LANSOPRAZOLE
  6. ENOXAPARIN [Concomitant]
     Active Substance: ENOXAPARIN

REACTIONS (2)
  - Haemoptysis [Recovering/Resolving]
  - Cough [Recovering/Resolving]
